FAERS Safety Report 25060194 (Version 4)
Quarter: 2025Q1

REPORT INFORMATION
  Report Type: Spontaneous
  Country: US (occurrence: US)
  Receive Date: 20250310
  Receipt Date: 20250327
  Transmission Date: 20250409
  Serious: No
  Sender: CHEMISCHE FABRIK KREUSSLER
  Company Number: ae001US25

PATIENT
  Age: 30 Year
  Sex: Female

DRUGS (1)
  1. ASCLERA [Suspect]
     Active Substance: POLIDOCANOL
     Indication: Reticular veins
     Dates: start: 20240125

REACTIONS (4)
  - Throat irritation [Recovering/Resolving]
  - Dysgeusia [Recovering/Resolving]
  - Burning sensation [Recovering/Resolving]
  - Dizziness [Recovering/Resolving]
